FAERS Safety Report 8173933-0 (Version None)
Quarter: 2012Q1

REPORT INFORMATION
  Report Type: 
  Country: None (occurrence: None)
  Receive Date: 20120229
  Receipt Date: 20120223
  Transmission Date: 20120608
  Serious: Yes (Other)
  Sender: FDA-Public Use
  Company Number: BR-PFIZER INC-2010002134

PATIENT
  Age: 44 Year
  Sex: Male
  Weight: 78 kg

DRUGS (8)
  1. VARENICLINE TARTRATE [Interacting]
     Dosage: 1 MG, 2X/DAY
     Route: 048
     Dates: start: 20100201, end: 20100223
  2. CLOPIDOGREL [Concomitant]
     Dosage: UNK
  3. PAROXETINE [Interacting]
     Indication: ANXIETY
     Dosage: UNK
  4. ALPRAZOLAM [Concomitant]
     Dosage: UNK
  5. ENALAPRIL [Concomitant]
     Dosage: UNK
  6. VARENICLINE TARTRATE [Suspect]
     Indication: SMOKING CESSATION THERAPY
     Dosage: 1 MG, EVERY 12 HOURS
     Route: 048
     Dates: start: 20091123, end: 20100217
  7. SIMVASTATIN [Concomitant]
     Dosage: UNK
  8. ATENOLOL [Concomitant]
     Dosage: UNK

REACTIONS (4)
  - ANXIETY [None]
  - MALAISE [None]
  - DRUG INTERACTION [None]
  - PANIC REACTION [None]
